FAERS Safety Report 4983896-4 (Version None)
Quarter: 2006Q2

REPORT INFORMATION
  Report Type: 
  Country: None (occurrence: None)
  Receive Date: 20060426
  Receipt Date: 20050414
  Transmission Date: 20061013
  Serious: Yes (Hospitalization, Disabling)
  Sender: FDA-Public Use
  Company Number: US-MERCK-0504USA02413

PATIENT
  Age: 49 Year
  Sex: Male
  Weight: 100 kg

DRUGS (9)
  1. VIOXX [Suspect]
     Indication: OSTEOARTHRITIS
     Route: 048
     Dates: start: 20000216, end: 20011001
  2. VIOXX [Suspect]
     Route: 048
     Dates: start: 20021016, end: 20030116
  3. VIOXX [Suspect]
     Route: 048
     Dates: start: 20030903, end: 20031201
  4. VIOXX [Suspect]
     Route: 048
     Dates: start: 20040528, end: 20040802
  5. VIOXX [Suspect]
     Indication: TENOSYNOVITIS
     Route: 048
     Dates: start: 20000216, end: 20011001
  6. VIOXX [Suspect]
     Route: 048
     Dates: start: 20021016, end: 20030116
  7. VIOXX [Suspect]
     Route: 048
     Dates: start: 20030903, end: 20031201
  8. VIOXX [Suspect]
     Route: 048
     Dates: start: 20040528, end: 20040802
  9. TYLENOL (CAPLET) [Concomitant]
     Route: 065

REACTIONS (34)
  - ARTHRALGIA [None]
  - ASTHENIA [None]
  - BLOOD PRESSURE INCREASED [None]
  - BURSITIS [None]
  - CANDIDIASIS [None]
  - CHEST DISCOMFORT [None]
  - CHEST PAIN [None]
  - CORONARY ARTERY DISEASE [None]
  - CORONARY ARTERY STENOSIS [None]
  - DEHYDRATION [None]
  - DRUG INEFFECTIVE [None]
  - GASTROINTESTINAL DISORDER [None]
  - HEARING IMPAIRED [None]
  - HYPERLIPIDAEMIA [None]
  - INJURY [None]
  - ISCHAEMIA [None]
  - LEUKOPENIA [None]
  - LIVER FUNCTION TEST ABNORMAL [None]
  - METASTATIC SQUAMOUS CELL CARCINOMA [None]
  - MUCOSAL INFLAMMATION [None]
  - MUSCULAR WEAKNESS [None]
  - MUSCULOSKELETAL CHEST PAIN [None]
  - MYALGIA [None]
  - MYOCARDIAL ISCHAEMIA [None]
  - NAUSEA [None]
  - NECK PAIN [None]
  - PERIARTHRITIS [None]
  - PYREXIA [None]
  - SCLERAL HAEMORRHAGE [None]
  - SQUAMOUS CELL CARCINOMA [None]
  - TENOSYNOVITIS [None]
  - TINNITUS [None]
  - VOMITING [None]
  - WEIGHT DECREASED [None]
